FAERS Safety Report 4388821-5 (Version None)
Quarter: 2004Q2

REPORT INFORMATION
  Report Type: 
  Country: None (occurrence: None)
  Receive Date: 20040624
  Receipt Date: 20040615
  Transmission Date: 20050107
  Serious: Yes (Congenital Anomaly)
  Sender: FDA-Public Use
  Company Number: STA-AE-04-013

PATIENT
  Sex: Female

DRUGS (1)
  1. PROPYLTHIOURACIL [Suspect]
     Indication: BASEDOW'S DISEASE
     Dosage: 200MG QD

REACTIONS (16)
  - ANAL STENOSIS [None]
  - ASCITES [None]
  - BLADDER DISTENSION [None]
  - CONGENITAL ANOMALY [None]
  - CONGENITAL GENITAL MALFORMATION FEMALE [None]
  - FOETAL DISORDER [None]
  - FOETAL HAEMOGLOBIN DECREASED [None]
  - GOITRE [None]
  - HYDROPS FOETALIS [None]
  - HYPOTHYROIDISM [None]
  - MATERNAL DRUGS AFFECTING FOETUS [None]
  - MEAN CELL VOLUME ABNORMAL [None]
  - POLYDACTYLY [None]
  - PREMATURE BABY [None]
  - PYELECTASIA [None]
  - UROGENITAL FISTULA [None]
